FAERS Safety Report 13175434 (Version 1)
Quarter: 2017Q1

REPORT INFORMATION
  Report Type: Report from Study
  Country: US (occurrence: US)
  Receive Date: 20170201
  Receipt Date: 20170201
  Transmission Date: 20170428
  Serious: Yes (Life-Threatening)
  Sender: FDA-Public Use
  Company Number: US-PFIZER INC-2016599141

PATIENT

DRUGS (2)
  1. SIROLIMUS. [Suspect]
     Active Substance: SIROLIMUS
     Indication: NEOPLASM MALIGNANT
     Dosage: 4 MG, DAILY
     Route: 048
  2. BEVACIZUMAB [Suspect]
     Active Substance: BEVACIZUMAB
     Indication: NEOPLASM MALIGNANT
     Dosage: 15 MG/KG, EVERY 3 WEEKS
     Route: 042

REACTIONS (2)
  - Acute respiratory distress syndrome [Recovering/Resolving]
  - Respiratory failure [Recovering/Resolving]
